FAERS Safety Report 5915442-2 (Version None)
Quarter: 2008Q4

REPORT INFORMATION
  Report Type: 
  Country: None (occurrence: None)
  Receive Date: 20081010
  Receipt Date: 20080930
  Transmission Date: 20090506
  Serious: Yes (Hospitalization)
  Sender: FDA-Public Use
  Company Number: SE-ELI_LILLY_AND_COMPANY-SE200810000427

PATIENT
  Sex: Female

DRUGS (9)
  1. OLANZAPINE [Suspect]
     Dates: start: 20080701
  2. HALDOL [Concomitant]
     Route: 048
     Dates: start: 20080701, end: 20080701
  3. DEPOLAN [Concomitant]
     Route: 048
     Dates: start: 20080903, end: 20080908
  4. DICLOFENAC [Concomitant]
     Route: 048
     Dates: start: 20080101, end: 20080908
  5. XALATAN [Concomitant]
  6. OMEPRAZOLE [Concomitant]
  7. ZOPIKLON [Concomitant]
  8. MYCOSTATIN [Concomitant]
     Route: 048
  9. ASPIRIN [Concomitant]
     Route: 048

REACTIONS (5)
  - APATHY [None]
  - BLOOD CREATININE INCREASED [None]
  - COGNITIVE DISORDER [None]
  - FALL [None]
  - MALAISE [None]
